FAERS Safety Report 19838179 (Version 2)
Quarter: 2021Q4

REPORT INFORMATION
  Report Type: Spontaneous
  Country: AR (occurrence: AR)
  Receive Date: 20210916
  Receipt Date: 20211004
  Transmission Date: 20220303
  Serious: Yes (Other)
  Sender: FDA-Public Use
  Company Number: NVSC2021AR209435

PATIENT
  Age: 58 Year
  Sex: Female

DRUGS (10)
  1. ENTRESTO [Suspect]
     Active Substance: SACUBITRIL\VALSARTAN
     Indication: Cardiac failure
     Dosage: 50 MG
     Route: 065
  2. ENTRESTO [Suspect]
     Active Substance: SACUBITRIL\VALSARTAN
     Dosage: UNK UNK, QD (1 OF 50 MG)
     Route: 048
     Dates: start: 20180201, end: 20210918
  3. BISOPROLOL FUMARATE [Concomitant]
     Active Substance: BISOPROLOL FUMARATE
     Indication: Cardiac disorder
     Dosage: UNK UNK, QD (1 OF 5 MG)
     Route: 065
     Dates: start: 2018
  4. LASIX [Concomitant]
     Active Substance: FUROSEMIDE
     Indication: Cardiac disorder
     Dosage: UNK
     Route: 065
     Dates: start: 2018
  5. ALDACTONE [Concomitant]
     Active Substance: SPIRONOLACTONE
     Indication: Cardiac disorder
     Dosage: UNK UNK, QD (1 OF 25 MG)
     Route: 065
     Dates: start: 2018
  6. ASPIRIN [Concomitant]
     Active Substance: ASPIRIN
     Indication: Product used for unknown indication
     Dosage: UNK (1 OF 100 MG, AT NIGHT)
     Route: 065
  7. SINLIP [Concomitant]
     Indication: Cardiac disorder
     Dosage: UNK (1 OF 5 MG, AT NIGHT)
     Route: 065
     Dates: start: 2018
  8. DEXOPRAL [Concomitant]
     Indication: Gastric disorder
     Dosage: UNK (1, EVERY MORNING)
     Route: 065
  9. GLEMAZ [Concomitant]
     Indication: Diabetes mellitus
     Dosage: UNK (2 OF 4 MG, DAILY)
     Route: 065
  10. INSULIN NOS [Concomitant]
     Active Substance: INSULIN NOS
     Indication: Product used for unknown indication
     Dosage: UNK (10 UNITS, AT NIGHT)
     Route: 065

REACTIONS (5)
  - Arrhythmia [Recovering/Resolving]
  - Hypothyroidism [Unknown]
  - Limb discomfort [Unknown]
  - Incorrect dose administered [Unknown]
  - Prescribed underdose [Unknown]

NARRATIVE: CASE EVENT DATE: 20201201
